FAERS Safety Report 7278304-7 (Version None)
Quarter: 2011Q1

REPORT INFORMATION
  Report Type: 
  Country: None (occurrence: None)
  Receive Date: 20110202
  Receipt Date: 20110202
  Transmission Date: 20110831
  Serious: Yes (Life-Threatening, Hospitalization, Other)
  Sender: FDA-Public Use
  Company Number: None

PATIENT
  Age: 41 Year
  Sex: Female
  Weight: 132.4503 kg

DRUGS (2)
  1. CYMBALTA [Suspect]
     Dates: start: 20100603, end: 20110102
  2. CYMBALTA [Suspect]
     Indication: DEPRESSION
     Dosage: 90 MG DAILY PO
     Route: 048
     Dates: start: 20070101, end: 20100519

REACTIONS (17)
  - ARTHRALGIA [None]
  - AMNESIA [None]
  - OEDEMA PERIPHERAL [None]
  - MUSCLE SPASMS [None]
  - SUICIDE ATTEMPT [None]
  - BLOOD PRESSURE ABNORMAL [None]
  - INADEQUATE ANALGESIA [None]
  - MOOD SWINGS [None]
  - DIZZINESS [None]
  - DEPRESSED MOOD [None]
  - PAIN [None]
  - HYPERHIDROSIS [None]
  - INSOMNIA [None]
  - VISION BLURRED [None]
  - FIBROMYALGIA [None]
  - FLAT AFFECT [None]
  - DRUG WITHDRAWAL SYNDROME [None]
